FAERS Safety Report 7170751-7 (Version None)
Quarter: 2010Q4

REPORT INFORMATION
  Report Type: 
  Country: None (occurrence: None)
  Receive Date: 20101214
  Receipt Date: 20101214
  Transmission Date: 20110411
  Serious: Yes (Other)
  Sender: FDA-Public Use
  Company Number: None

PATIENT
  Age: 22 Year
  Sex: Female
  Weight: 63.05 kg

DRUGS (1)
  1. OCELLA BARR LABORATORIES [Suspect]
     Indication: CONTRACEPTION
     Dosage: 1 TABLET DAILY PO
     Route: 048
     Dates: start: 20080110, end: 20101210

REACTIONS (6)
  - GALLBLADDER DISORDER [None]
  - GASTRIC DISORDER [None]
  - HEADACHE [None]
  - SEXUAL DYSFUNCTION [None]
  - SKIN DISCOLOURATION [None]
  - VAGINAL DISCHARGE [None]
